FAERS Safety Report 19647700 (Version 10)
Quarter: 2025Q1

REPORT INFORMATION
  Report Type: Spontaneous
  Country: US (occurrence: US)
  Receive Date: 20210802
  Receipt Date: 20250227
  Transmission Date: 20250409
  Serious: No
  Sender: PFIZER
  Company Number: US-PFIZER INC-2021130954

PATIENT
  Age: 58 Year
  Sex: Female
  Weight: 65.77 kg

DRUGS (4)
  1. IBRANCE [Suspect]
     Active Substance: PALBOCICLIB
     Indication: Breast cancer metastatic
     Dosage: 125 MG, 1X/DAY (ONCE A DAY)
  2. XGEVA [Concomitant]
     Active Substance: DENOSUMAB
  3. LETROZOLE [Concomitant]
     Active Substance: LETROZOLE
  4. CLARITIN [Concomitant]
     Active Substance: LORATADINE
     Indication: Bone pain

REACTIONS (2)
  - Dry skin [Unknown]
  - Alopecia [Not Recovered/Not Resolved]
